FAERS Safety Report 16740870 (Version 2)
Quarter: 2019Q3

REPORT INFORMATION
  Report Type: Spontaneous
  Country: US (occurrence: US)
  Receive Date: 20190826
  Receipt Date: 20190911
  Transmission Date: 20191005
  Serious: Yes (Death, Other)
  Sender: FDA-Public Use
  Company Number: US-ALNYLAM PHARMACEUTICALS, INC.-ALN-2019-000561

PATIENT
  Age: 63 Year
  Sex: Female
  Weight: 40.36 kg

DRUGS (1)
  1. ONPATTRO [Suspect]
     Active Substance: PATISIRAN SODIUM
     Indication: HEREDITARY NEUROPATHIC AMYLOIDOSIS
     Dosage: UNK
     Route: 042
     Dates: start: 20190405

REACTIONS (5)
  - Malabsorption [Unknown]
  - Terminal state [Unknown]
  - Death [Fatal]
  - Hypotension [Unknown]
  - Underweight [Unknown]

NARRATIVE: CASE EVENT DATE: 20190723
